FAERS Safety Report 24416783 (Version 6)
Quarter: 2025Q4

REPORT INFORMATION
  Report Type: Report from Study
  Country: US (occurrence: US)
  Receive Date: 20241009
  Receipt Date: 20251230
  Transmission Date: 20260118
  Serious: No
  Sender: PFIZER
  Company Number: US-PFIZER INC-202400271709

PATIENT
  Age: 62 Year
  Sex: Female
  Weight: 75.1 kg

DRUGS (4)
  1. IBRANCE [Suspect]
     Active Substance: PALBOCICLIB
     Indication: Breast cancer female
     Dosage: DAILY D 1-21 AND 1 WEEK OFF, TAKE 1 TABLET DAILY FOR 21 DAYS ON, FOLLOWED BY 7 DAYS OFF
     Route: 048
     Dates: start: 20230724
  2. IBRANCE [Suspect]
     Active Substance: PALBOCICLIB
     Indication: Metastases to lung
  3. LETROZOLE [Concomitant]
     Active Substance: LETROZOLE
     Indication: Therapeutic procedure
     Dosage: 2.5 MG, DAILY
     Route: 048
  4. XANAX [Concomitant]
     Active Substance: ALPRAZOLAM
     Indication: Anxiety
     Dosage: 0.5 MG, AS NEEDED, AT BEDTIME
     Route: 048

REACTIONS (3)
  - Hot flush [Recovering/Resolving]
  - Muscle spasms [Recovered/Resolved]
  - Alopecia [Not Recovered/Not Resolved]

NARRATIVE: CASE EVENT DATE: 20231001
